FAERS Safety Report 9667967 (Version 1)
Quarter: 2013Q4

REPORT INFORMATION
  Report Type: Spontaneous
  Country: US (occurrence: US)
  Receive Date: 20131104
  Receipt Date: 20131104
  Transmission Date: 20140711
  Serious: Yes (Death, Hospitalization)
  Sender: FDA-Public Use
  Company Number: US-GLAXOSMITHKLINE-A1047531A

PATIENT
  Age: 85 Year
  Sex: Female

DRUGS (6)
  1. ADVAIR [Suspect]
     Indication: CHRONIC OBSTRUCTIVE PULMONARY DISEASE
     Dosage: 1PUFF TWICE PER DAY
     Route: 055
     Dates: start: 2012
  2. SPIRIVA [Concomitant]
  3. UNSPECIFIED INHALER [Concomitant]
  4. BLOOD PRESSURE MEDICATION [Concomitant]
  5. OTHER MEDICATIONS [Concomitant]
  6. WATER PILL [Concomitant]

REACTIONS (2)
  - Death [Fatal]
  - Hospitalisation [Unknown]
